FAERS Safety Report 13388897 (Version 1)
Quarter: 2017Q1

REPORT INFORMATION
  Report Type: Spontaneous
  Country: US (occurrence: US)
  Receive Date: 20170331
  Receipt Date: 20170331
  Transmission Date: 20170429
  Serious: No
  Sender: FDA-Public Use
  Company Number: US-JNJFOC-20170319460

PATIENT
  Age: 66 Year
  Sex: Female
  Weight: 60.78 kg

DRUGS (2)
  1. PEPCID AC MAXIMUM STRENGTH [Suspect]
     Active Substance: FAMOTIDINE
     Indication: DYSPEPSIA
     Dosage: 1 TABLET (20MG), ONE IN THE MORNING AND ONE AT NIGHT TIME, A TOTAL OF 2 TABLETS PER DAY
     Route: 048
     Dates: start: 20170220
  2. PEPCID AC MAXIMUM STRENGTH [Suspect]
     Active Substance: FAMOTIDINE
     Indication: ADVERSE DRUG REACTION
     Dosage: 1 TABLET (20MG), ONE IN THE MORNING AND ONE AT NIGHT TIME, A TOTAL OF 2 TABLETS PER DAY
     Route: 048
     Dates: start: 20170220

REACTIONS (3)
  - Off label use [Recovering/Resolving]
  - Product use issue [Recovering/Resolving]
  - Dizziness [Recovering/Resolving]

NARRATIVE: CASE EVENT DATE: 20170220
